FAERS Safety Report 4273738-7 (Version None)
Quarter: 2004Q1

REPORT INFORMATION
  Report Type: 
  Country: None (occurrence: None)
  Receive Date: 20040119
  Receipt Date: 20040112
  Transmission Date: 20041129
  Serious: Yes (Other)
  Sender: FDA-Public Use
  Company Number: PHBS2004BR00775

PATIENT
  Age: 5 Year
  Sex: Male

DRUGS (1)
  1. MELLERIL [Suspect]
     Indication: MEDICATION ERROR
     Dosage: 3 DF, ONCE/SINGLE
     Route: 048
     Dates: start: 20040109

REACTIONS (3)
  - ACCIDENTAL OVERDOSE [None]
  - DEPRESSED LEVEL OF CONSCIOUSNESS [None]
  - SOMNOLENCE [None]
